FAERS Safety Report 11797838 (Version 1)
Quarter: 2015Q4

REPORT INFORMATION
  Report Type: Spontaneous
  Country: US (occurrence: US)
  Receive Date: 20151203
  Receipt Date: 20151203
  Transmission Date: 20160305
  Serious: No
  Sender: FDA-Public Use
  Company Number: US-ASTRAZENECA-2015SF18498

PATIENT
  Sex: Female

DRUGS (1)
  1. TUDORZA PRESSAIR [Suspect]
     Active Substance: ACLIDINIUM BROMIDE
     Dosage: 400 MCG,  1 PUFF TWICE A DAY
     Route: 055

REACTIONS (3)
  - Drug dose omission [Unknown]
  - Depressed mood [Unknown]
  - Product quality issue [Unknown]

NARRATIVE: CASE EVENT DATE: 20151120
